FAERS Safety Report 7133748-9 (Version None)
Quarter: 2010Q4

REPORT INFORMATION
  Report Type: 
  Country: None (occurrence: None)
  Receive Date: 20101203
  Receipt Date: 20101123
  Transmission Date: 20110411
  Serious: Yes (Hospitalization)
  Sender: FDA-Public Use
  Company Number: US-BIOGENIDEC-2010BI031347

PATIENT
  Age: 55 Year
  Sex: Female
  Weight: 74 kg

DRUGS (1)
  1. AVONEX [Suspect]
     Indication: MULTIPLE SCLEROSIS
     Route: 030
     Dates: start: 20040213

REACTIONS (7)
  - ERYTHEMA [None]
  - INFECTION [None]
  - PERONEAL NERVE PALSY [None]
  - PROCEDURAL PAIN [None]
  - PRURITUS [None]
  - SPINAL MENINGIOMA BENIGN [None]
  - WOUND TREATMENT [None]
